FAERS Safety Report 25889367 (Version 1)
Quarter: 2025Q4

REPORT INFORMATION
  Report Type: Spontaneous
  Country: US (occurrence: None)
  Receive Date: 20251007
  Receipt Date: 20251007
  Transmission Date: 20260119
  Serious: No
  Sender: ENCUBE ETHICALS PVT. LTD.
  Company Number: US-Encube-002291

PATIENT
  Sex: Female

DRUGS (1)
  1. PERMETHRIN [Suspect]
     Active Substance: PERMETHRIN
     Indication: Bite

REACTIONS (4)
  - Swelling face [Unknown]
  - Erythema [Unknown]
  - Lip swelling [Unknown]
  - Off label use [Unknown]
